FAERS Safety Report 8197521-5 (Version None)
Quarter: 2012Q1

REPORT INFORMATION
  Report Type: 
  Country: None (occurrence: None)
  Receive Date: 20120309
  Receipt Date: 20120229
  Transmission Date: 20120608
  Serious: Yes (Other)
  Sender: FDA-Public Use
  Company Number: JP-MILLENNIUM PHARMACEUTICALS, INC.-2012-00493

PATIENT

DRUGS (3)
  1. DEXAMETHASONE [Concomitant]
  2. VELCADE [Suspect]
     Indication: PRODUCT USED FOR UNKNOWN INDICATION
     Dosage: 1.3 MG/M2, CYCLIC
     Route: 042
     Dates: start: 20111001, end: 20120101
  3. COTRIM [Concomitant]

REACTIONS (2)
  - SWELLING FACE [None]
  - DRUG RASH WITH EOSINOPHILIA AND SYSTEMIC SYMPTOMS [None]
